FAERS Safety Report 5501647-1 (Version None)
Quarter: 2007Q4

REPORT INFORMATION
  Report Type: 
  Country: None (occurrence: None)
  Receive Date: 20071026
  Receipt Date: 20071015
  Transmission Date: 20080405
  Serious: Yes (Hospitalization, Other)
  Sender: FDA-Public Use
  Company Number: LTI2007A00286

PATIENT
  Age: 58 Year
  Sex: Female

DRUGS (1)
  1. ACTOS [Suspect]
     Indication: TYPE 2 DIABETES MELLITUS
     Dosage: (30 MG, 1 D) ORAL
     Route: 048
     Dates: end: 20070901

REACTIONS (3)
  - FALL [None]
  - FEMORAL NECK FRACTURE [None]
  - VITAMIN D DECREASED [None]
